FAERS Safety Report 9958537 (Version 10)
Quarter: 2015Q3

REPORT INFORMATION
  Report Type: Report from Study
  Country: AU (occurrence: AU)
  Receive Date: 20140305
  Receipt Date: 20150915
  Transmission Date: 20151125
  Serious: Yes (Hospitalization)
  Sender: FDA-Public Use
  Company Number: AU-ROCHE-1254721

PATIENT
  Age: 56 Year
  Sex: Female
  Weight: 58.4 kg

DRUGS (21)
  1. CIPROFLOXACIN. [Concomitant]
     Active Substance: CIPROFLOXACIN
     Indication: MOUTH ULCERATION
     Route: 065
     Dates: start: 20130905, end: 20130910
  2. PARACETAMOL [Concomitant]
     Active Substance: ACETAMINOPHEN
     Indication: PROPHYLAXIS
     Route: 065
     Dates: start: 20111221, end: 20130719
  3. LORATADINE. [Concomitant]
     Active Substance: LORATADINE
     Indication: PROPHYLAXIS
     Route: 065
     Dates: start: 20111221, end: 20130719
  4. PETER MAC MOUTHWASH (SODIUM CHLORIDE, SODIUM BICARBONATE) [Concomitant]
     Indication: MOUTH ULCERATION
     Route: 065
     Dates: start: 20130829, end: 20130930
  5. NILSTAT (AUSTRALIA) [Concomitant]
     Indication: MOUTH ULCERATION
     Dosage: ORAL LIQUID
     Route: 048
     Dates: start: 20131020, end: 20131215
  6. PANADOL (AUSTRALIA) [Concomitant]
     Indication: ORAL PAIN
     Route: 065
     Dates: start: 20130728, end: 20130730
  7. CHLORHEXIDINE MOUTHWASH [Concomitant]
     Indication: MOUTH ULCERATION
     Route: 065
     Dates: start: 20130829, end: 20130902
  8. CODEINE LINCTUS [Concomitant]
     Active Substance: CHLOROFORM\CODEINE PHOSPHATE\DRIMIA MARITIMA BULB
     Indication: ORAL PAIN
     Route: 065
     Dates: start: 20130906, end: 20131215
  9. CLIMARA [Concomitant]
     Active Substance: ESTRADIOL
     Indication: MENOPAUSE
     Route: 065
     Dates: end: 201308
  10. VALTREX [Concomitant]
     Active Substance: VALACYCLOVIR HYDROCHLORIDE
     Route: 065
     Dates: start: 20130906
  11. CLEXANE [Concomitant]
     Active Substance: ENOXAPARIN SODIUM
     Indication: DEEP VEIN THROMBOSIS
     Route: 065
     Dates: start: 20130820, end: 20130825
  12. OBINUTUZUMAB [Suspect]
     Active Substance: OBINUTUZUMAB
     Indication: NON-HODGKIN^S LYMPHOMA UNSPECIFIED HISTOLOGY INDOLENT
     Dosage: VOLUME OF LAST STUDY DRUG ADMINISTERED: 250ML,?DOSE CONCENTRATION: 1000MG/ML,?MOST RECENT DOSE OF ST
     Route: 042
     Dates: start: 20111221
  13. FOLIC ACID. [Concomitant]
     Active Substance: FOLIC ACID
     Indication: NUTRITIONAL SUPPLEMENTATION
     Route: 065
     Dates: start: 201309
  14. VALTREX [Concomitant]
     Active Substance: VALACYCLOVIR HYDROCHLORIDE
     Route: 065
     Dates: start: 20130722, end: 20130801
  15. VALTREX [Concomitant]
     Active Substance: VALACYCLOVIR HYDROCHLORIDE
     Route: 065
     Dates: start: 20130830
  16. PANADOL (AUSTRALIA) [Concomitant]
     Route: 065
     Dates: start: 20130731, end: 20130801
  17. BENDAMUSTINE [Suspect]
     Active Substance: BENDAMUSTINE
     Indication: NON-HODGKIN^S LYMPHOMA UNSPECIFIED HISTOLOGY INDOLENT
     Dosage: DOSE OF LAST STUDY DRUG ADMINISTERED: 155 MG.
     Route: 042
     Dates: start: 20111221, end: 20120510
  18. VALTREX [Concomitant]
     Active Substance: VALACYCLOVIR HYDROCHLORIDE
     Indication: MOUTH ULCERATION
     Route: 065
     Dates: start: 20130717, end: 20130721
  19. CURASEPT ADS 205 [Concomitant]
     Indication: MOUTH ULCERATION
     Dosage: CURASEPT MOUTHWASH. INGREDIENTS: CHLORHEXIDINE AND SODIUM FLUORIDE
     Route: 065
     Dates: start: 20130802, end: 20131231
  20. ENDONE [Concomitant]
     Active Substance: OXYCODONE HYDROCHLORIDE
     Indication: ORAL PAIN
     Route: 065
     Dates: start: 20130731, end: 20130801
  21. WARFARIN SODIUM. [Concomitant]
     Active Substance: WARFARIN SODIUM
     Indication: DEEP VEIN THROMBOSIS
     Route: 065
     Dates: start: 20130821

REACTIONS (1)
  - Febrile neutropenia [Recovered/Resolved]

NARRATIVE: CASE EVENT DATE: 20130728
